FAERS Safety Report 15404242 (Version 1)
Quarter: 2018Q3

REPORT INFORMATION
  Report Type: Spontaneous
  Country: US (occurrence: US)
  Receive Date: 20180919
  Receipt Date: 20180919
  Transmission Date: 20181010
  Serious: No
  Sender: FDA-Public Use
  Company Number: US-LANNETT COMPANY, INC.-US-2018LAN000974

PATIENT

DRUGS (2)
  1. LACTULOSE. [Suspect]
     Active Substance: LACTULOSE
     Dosage: UNK
     Route: 048
     Dates: start: 20170826
  2. LACTULOSE. [Suspect]
     Active Substance: LACTULOSE
     Indication: LAXATIVE SUPPORTIVE CARE
     Dosage: UNK
     Route: 048

REACTIONS (5)
  - Drug ineffective [Unknown]
  - Muscle spasms [Unknown]
  - Product storage error [Unknown]
  - Product odour abnormal [Unknown]
  - Product taste abnormal [Unknown]
